FAERS Safety Report 6067416-1 (Version None)
Quarter: 2009Q1

REPORT INFORMATION
  Report Type: 
  Country: None (occurrence: None)
  Receive Date: 20090204
  Receipt Date: 20090204
  Transmission Date: 20090719
  Serious: Yes (Hospitalization)
  Sender: FDA-Public Use
  Company Number: None

PATIENT
  Age: 74 Year
  Sex: Male
  Weight: 77.3 kg

DRUGS (1)
  1. WARFARIN SODIUM [Suspect]
     Indication: SURGERY
     Dosage: EVERY DAY PO
     Route: 048
     Dates: end: 20090127

REACTIONS (3)
  - ANAEMIA [None]
  - GASTRIC HAEMORRHAGE [None]
  - HYPOTENSION [None]
